FAERS Safety Report 7988823-3 (Version None)
Quarter: 2011Q4

REPORT INFORMATION
  Report Type: 
  Country: None (occurrence: None)
  Receive Date: 20111215
  Receipt Date: 20111215
  Transmission Date: 20120403
  Serious: Yes (Hospitalization)
  Sender: FDA-Public Use
  Company Number: None

PATIENT
  Sex: Female
  Weight: 46.3 kg

DRUGS (4)
  1. IMMUNE GLOBULIN INTRAVENOUS (HUMAN) [Concomitant]
  2. RITUXAN [Suspect]
     Dosage: 1000 MG ONCE IV
     Route: 042
     Dates: start: 20110614
  3. MYCOPHENOLATE MOFETIL (CELLCEPT) [Concomitant]
  4. TACROLIMUS [Concomitant]

REACTIONS (4)
  - DYSPNOEA [None]
  - PULMONARY EMBOLISM [None]
  - COMPLICATIONS OF TRANSPLANTED KIDNEY [None]
  - CHEST PAIN [None]
